FAERS Safety Report 9657435 (Version 1)
Quarter: 2013Q4

REPORT INFORMATION
  Report Type: Spontaneous
  Country: US (occurrence: US)
  Receive Date: 20131030
  Receipt Date: 20131030
  Transmission Date: 20140711
  Serious: Yes (Death)
  Sender: FDA-Public Use
  Company Number: US-NAPPMUNDI-USA-2011-0077118

PATIENT
  Age: 14 Year
  Sex: Male

DRUGS (3)
  1. OXYCONTIN TABLETS [Suspect]
     Indication: DRUG ABUSE
  2. SOMA [Suspect]
     Indication: DRUG ABUSE
  3. ALCOHOL [Suspect]
     Indication: SUBSTANCE ABUSE

REACTIONS (2)
  - Overdose [Fatal]
  - Substance abuse [Fatal]
